FAERS Safety Report 21329566 (Version 1)
Quarter: 2022Q3

REPORT INFORMATION
  Report Type: Other
  Country: US (occurrence: US)
  Receive Date: 20220913
  Receipt Date: 20220913
  Transmission Date: 20221026
  Serious: No
  Sender: FDA-Public Use
  Company Number: US-LEADIANT BIOSCIENCES INC-2022STPI000036

PATIENT
  Sex: Female

DRUGS (1)
  1. MATULANE [Suspect]
     Active Substance: PROCARBAZINE HYDROCHLORIDE
     Indication: Hodgkin^s disease nodular sclerosis
     Dosage: 50 MILLIGRAM, TAKE 3 CAPSULES (150 MG TOTAL), DAILY FOR 7 DAYS ON 7 DAYS OFF OF A 14 DAY CYCLE
     Route: 048
     Dates: start: 20220114

REACTIONS (1)
  - Product dose omission issue [Unknown]
